FAERS Safety Report 9472357 (Version 1)
Quarter: 2013Q3

REPORT INFORMATION
  Report Type: Spontaneous
  Country: US (occurrence: None)
  Receive Date: 20130821
  Receipt Date: 20130821
  Transmission Date: 20140515
  Serious: Yes (Disabling, Other)
  Sender: FDA-Public Use
  Company Number: None

PATIENT
  Age: 51 Year
  Sex: Female
  Weight: 113.4 kg

DRUGS (1)
  1. CYMBALTA [Suspect]
     Indication: GENERALISED ANXIETY DISORDER
     Route: 048
     Dates: start: 20130601, end: 20130820

REACTIONS (8)
  - Sleep disorder [None]
  - Anxiety [None]
  - Flushing [None]
  - Migraine [None]
  - Panic attack [None]
  - Diarrhoea [None]
  - Blood pressure fluctuation [None]
  - Withdrawal syndrome [None]
